FAERS Safety Report 18957029 (Version 1)
Quarter: 2021Q1

REPORT INFORMATION
  Report Type: Report from Study
  Country: DE (occurrence: DE)
  Receive Date: 20210302
  Receipt Date: 20210302
  Transmission Date: 20210420
  Serious: Yes (Congenital Anomaly)
  Sender: FDA-Public Use
  Company Number: DE-BIOGEN-2021BI00983429

PATIENT
  Age: 0 Day
  Sex: Male
  Weight: 3.83 kg

DRUGS (1)
  1. TECFIDERA [Suspect]
     Active Substance: DIMETHYL FUMARATE
     Indication: MATERNAL EXPOSURE TIMING UNSPECIFIED
     Dosage: MAINTENANCE DOSE
     Route: 064
     Dates: start: 20151217, end: 2019

REACTIONS (2)
  - Foetal exposure during pregnancy [Recovered/Resolved]
  - Anomaly of external ear congenital [Not Recovered/Not Resolved]

NARRATIVE: CASE EVENT DATE: 20200607
